FAERS Safety Report 13788457 (Version 1)
Quarter: 2017Q3

REPORT INFORMATION
  Report Type: Spontaneous
  Country: US (occurrence: US)
  Receive Date: 20170725
  Receipt Date: 20170725
  Transmission Date: 20171127
  Serious: No
  Sender: FDA-Public Use
  Company Number: US-JNJFOC-20170323505

PATIENT
  Sex: Male

DRUGS (15)
  1. FISH OIL [Concomitant]
     Active Substance: FISH OIL
  2. AVODART [Concomitant]
     Active Substance: DUTASTERIDE
  3. PRAVASTATIN. [Concomitant]
     Active Substance: PRAVASTATIN
  4. VITAMIN D3 [Concomitant]
     Active Substance: CHOLECALCIFEROL
  5. ASPIRIN. [Concomitant]
     Active Substance: ASPIRIN
  6. CENTRUM [Concomitant]
     Active Substance: VITAMINS
  7. CALCIUM + MAGNESIUM + ZINK [Concomitant]
  8. BENADRYL [Concomitant]
     Active Substance: DIPHENHYDRAMINE HYDROCHLORIDE
  9. WARFARIN [Concomitant]
     Active Substance: WARFARIN
  10. FINASTERIDE. [Concomitant]
     Active Substance: FINASTERIDE
  11. LEVOTHYROXINE. [Concomitant]
     Active Substance: LEVOTHYROXINE
  12. IMBRUVICA [Suspect]
     Active Substance: IBRUTINIB
     Indication: MANTLE CELL LYMPHOMA
     Route: 048
     Dates: start: 20151112
  13. TAMSULOSIN [Concomitant]
     Active Substance: TAMSULOSIN
  14. VITAMIN C [Concomitant]
     Active Substance: ASCORBIC ACID
  15. RITUXAN [Concomitant]
     Active Substance: RITUXIMAB

REACTIONS (2)
  - Cystitis [Unknown]
  - Kidney infection [Unknown]

NARRATIVE: CASE EVENT DATE: 2017
